FAERS Safety Report 19228386 (Version 2)
Quarter: 2021Q3

REPORT INFORMATION
  Report Type: Spontaneous
  Country: CA (occurrence: CA)
  Receive Date: 20210506
  Receipt Date: 20210813
  Transmission Date: 20211014
  Serious: Yes (Other)
  Sender: FDA-Public Use
  Company Number: CA-PFIZER INC-2020405277

PATIENT
  Age: 44 Year
  Sex: Male

DRUGS (1)
  1. XELJANZ [Suspect]
     Active Substance: TOFACITINIB CITRATE
     Indication: COLITIS ULCERATIVE
     Dosage: 10 MG, TWICE DAILY
     Route: 048
     Dates: start: 20201006

REACTIONS (11)
  - Palpitations [Recovered/Resolved]
  - Nausea [Recovered/Resolved]
  - Night sweats [Unknown]
  - Abdominal pain [Unknown]
  - Hyperhidrosis [Unknown]
  - Retching [Unknown]
  - Chest discomfort [Unknown]
  - Cardiac discomfort [Unknown]
  - Angina pectoris [Unknown]
  - Stress [Unknown]
  - Dizziness [Unknown]

NARRATIVE: CASE EVENT DATE: 202010
